FAERS Safety Report 7426152-7 (Version None)
Quarter: 2011Q2

REPORT INFORMATION
  Report Type: 
  Country: None (occurrence: None)
  Receive Date: 20110420
  Receipt Date: 20110414
  Transmission Date: 20111010
  Serious: Yes (Death)
  Sender: FDA-Public Use
  Company Number: PHHY2011CA30328

PATIENT
  Sex: Female

DRUGS (5)
  1. BROMAZEPAM [Concomitant]
     Dosage: 3 MG/ 1/2 PRN
  2. PREVACID [Concomitant]
     Dosage: 30 MG, BID
  3. CLOZARIL [Suspect]
     Indication: SCHIZOPHRENIA
     Dates: start: 19970114
  4. SENACOT [Concomitant]
     Dosage: 4 UNK, DAILY
  5. PENTASA [Concomitant]
     Dosage: UNK

REACTIONS (1)
  - DEATH [None]
